FAERS Safety Report 23500866 (Version 1)
Quarter: 2024Q1

REPORT INFORMATION
  Report Type: Spontaneous
  Country: CN (occurrence: CN)
  Receive Date: 20240208
  Receipt Date: 20240208
  Transmission Date: 20240410
  Serious: Yes (Other)
  Sender: FDA-Public Use
  Company Number: CN-PFIZER INC-PV202400017262

PATIENT
  Age: 57 Year
  Sex: Female
  Weight: 60 kg

DRUGS (2)
  1. TYGACIL [Suspect]
     Active Substance: TIGECYCLINE
     Indication: Pancreatitis acute
     Dosage: 50 MG, 2X/DAY
     Dates: start: 20240102, end: 20240104
  2. TYGACIL [Suspect]
     Active Substance: TIGECYCLINE
     Indication: Anti-infective therapy

REACTIONS (1)
  - Coagulopathy [Not Recovered/Not Resolved]

NARRATIVE: CASE EVENT DATE: 20240104
